FAERS Safety Report 16650772 (Version 3)
Quarter: 2019Q3

REPORT INFORMATION
  Report Type: Spontaneous
  Country: JP (occurrence: JP)
  Receive Date: 20190731
  Receipt Date: 20190908
  Transmission Date: 20191004
  Serious: Yes (Death, Other)
  Sender: FDA-Public Use
  Company Number: JP-AMGEN-JPNSP2019122129

PATIENT
  Age: 70 Year
  Sex: Female

DRUGS (22)
  1. EMEND [Concomitant]
     Active Substance: APREPITANT
     Indication: PRODUCT USED FOR UNKNOWN INDICATION
     Dosage: 80 MILLIGRAM, QD (AT 30 MINUTES AFTER BREAKFAST)
     Route: 048
     Dates: start: 20190702, end: 20190703
  2. DECADRON [Concomitant]
     Active Substance: DEXAMETHASONE
     Indication: PRODUCT USED FOR UNKNOWN INDICATION
     Dosage: 4 MILLIGRAM, BID (AT 30 MINUTES AFTER BREAKFAST AND LUNCH)
     Route: 048
     Dates: start: 20190702, end: 20190704
  3. ENDOXAN [CYCLOPHOSPHAMIDE] [Suspect]
     Active Substance: CYCLOPHOSPHAMIDE
     Indication: BREAST CANCER
     Dosage: UNK
     Route: 041
  4. GLUCOSE [Concomitant]
     Active Substance: DEXTROSE
     Indication: BREAST CANCER
     Dosage: 250 ML
     Route: 041
     Dates: start: 20190702, end: 20190702
  5. G-LASTA [Suspect]
     Active Substance: PEGFILGRASTIM
     Indication: COLONY STIMULATING FACTOR THERAPY
     Dosage: UNK
     Route: 058
  6. G-LASTA [Suspect]
     Active Substance: PEGFILGRASTIM
     Dosage: 3.6 MILLIGRAM
     Route: 058
     Dates: start: 20190703, end: 20190703
  7. ENDOXAN [CYCLOPHOSPHAMIDE] [Suspect]
     Active Substance: CYCLOPHOSPHAMIDE
     Dosage: UNK
     Route: 041
  8. DECADRON [DEXAMETHASONE SODIUM PHOSPHATE] [Concomitant]
     Indication: BREAST CANCER
     Dosage: 9.9 MILLIGRAM
     Route: 041
     Dates: start: 20190702, end: 20190702
  9. ROSUVASTATIN [ROSUVASTATIN CALCIUM] [Concomitant]
     Indication: PRODUCT USED FOR UNKNOWN INDICATION
     Dosage: 2.5 MILLIGRAM, QD (AT 30 MINUTES AFTER BREAKFAST)
     Route: 048
     Dates: start: 20190426
  10. ISOTONIC SODIUM CHLORIDE SOLUTION [Concomitant]
     Active Substance: SODIUM CHLORIDE
     Indication: BREAST CANCER
     Dosage: 50 MILLILITER
     Route: 041
     Dates: start: 20190702, end: 20190702
  11. ZYPREXA [Concomitant]
     Active Substance: OLANZAPINE
     Indication: PRODUCT USED FOR UNKNOWN INDICATION
     Dosage: 5 MILLIGRAM, QD (AT 30 MINUTES AFTER DINNER)
     Route: 048
     Dates: start: 20190701, end: 20190705
  12. PRIMPERAN [Concomitant]
     Active Substance: METOCLOPRAMIDE HYDROCHLORIDE
     Indication: PRODUCT USED FOR UNKNOWN INDICATION
     Dosage: 5 MILLIGRAM, TID (AT 30 MINUTES AFTER EACH MEAL)
     Route: 048
     Dates: start: 20190702, end: 20190706
  13. AMLODIPINE [AMLODIPINE BESILATE] [Concomitant]
     Active Substance: AMLODIPINE BESYLATE
     Indication: PRODUCT USED FOR UNKNOWN INDICATION
     Dosage: 5 MILLIGRAM, QD (AT 30 MINUTES AFTER BREAKFAST)
     Route: 048
     Dates: start: 20190426
  14. G-LASTA [Suspect]
     Active Substance: PEGFILGRASTIM
     Dosage: UNK
     Route: 058
  15. EPIRUBICIN HYDROCHLORIDE. [Suspect]
     Active Substance: EPIRUBICIN HYDROCHLORIDE
     Dosage: UNK
     Route: 041
  16. ENDOXAN [CYCLOPHOSPHAMIDE] [Suspect]
     Active Substance: CYCLOPHOSPHAMIDE
     Dosage: 860 MILLIGRAM
     Route: 041
     Dates: start: 20190702, end: 20190702
  17. ISOTONIC SODIUM CHLORIDE SOLUTION [Concomitant]
     Active Substance: SODIUM CHLORIDE
     Dosage: 100 MILLILITER
     Route: 041
     Dates: start: 20190702, end: 20190702
  18. EMEND [Concomitant]
     Active Substance: APREPITANT
     Dosage: 125 MG, QD, AT 30 MINUTES AFTER BREAKFAST
     Route: 048
     Dates: start: 20190702, end: 20190702
  19. SENNOSIDE [SENNOSIDE A+B] [Concomitant]
     Active Substance: SENNOSIDES A AND B
     Indication: PRODUCT USED FOR UNKNOWN INDICATION
     Dosage: 24 MILLIGRAM, QD (BEFORE BEDTIME)
     Route: 048
     Dates: start: 20190702, end: 20190706
  20. EPIRUBICIN HYDROCHLORIDE. [Suspect]
     Active Substance: EPIRUBICIN HYDROCHLORIDE
     Indication: BREAST CANCER
     Dosage: UNK
     Route: 041
  21. EPIRUBICIN HYDROCHLORIDE. [Suspect]
     Active Substance: EPIRUBICIN HYDROCHLORIDE
     Dosage: 130 MILLIGRAM
     Route: 041
     Dates: start: 20190702, end: 20190702
  22. ALOXI [Concomitant]
     Active Substance: PALONOSETRON HYDROCHLORIDE
     Indication: BREAST CANCER
     Dosage: 0.75 MILLIGRAM
     Route: 041
     Dates: start: 20190702, end: 20190702

REACTIONS (2)
  - Septic shock [Fatal]
  - Fournier^s gangrene [Fatal]

NARRATIVE: CASE EVENT DATE: 20190710
